FAERS Safety Report 8975984 (Version 1)
Quarter: 2012Q4

REPORT INFORMATION
  Report Type: 
  Country: GB (occurrence: GB)
  Receive Date: 20121219
  Receipt Date: 20121219
  Transmission Date: 20130627
  Serious: Yes (Congenital Anomaly)
  Sender: FDA-Public Use
  Company Number: PHHY2012GB115233

PATIENT
  Sex: Male
  Weight: 3.5 kg

DRUGS (1)
  1. QUETIAPINE [Suspect]
     Route: 064

REACTIONS (2)
  - Anomaly of external ear congenital [Unknown]
  - Foetal exposure during pregnancy [Unknown]
